FAERS Safety Report 18208464 (Version 2)
Quarter: 2020Q4

REPORT INFORMATION
  Report Type: Spontaneous
  Country: US (occurrence: US)
  Receive Date: 20200828
  Receipt Date: 20201013
  Transmission Date: 20210113
  Serious: No
  Sender: FDA-Public Use
  Company Number: US-BEH-2020121675

PATIENT
  Age: 39 Year
  Sex: Female

DRUGS (2)
  1. HUMATE-P [Suspect]
     Active Substance: HUMAN COAGULATION FACTOR VIII/VON WILLEBRAND FACTOR COMPLEX
     Indication: VON WILLEBRAND^S DISEASE
     Dosage: 1878 INTERNATIONAL UNIT, QD
     Route: 042
     Dates: start: 20200804
  2. HUMATE-P [Suspect]
     Active Substance: HUMAN COAGULATION FACTOR VIII/VON WILLEBRAND FACTOR COMPLEX
     Indication: VON WILLEBRAND^S DISEASE
     Dosage: 1878 INTERNATIONAL UNIT, QD
     Route: 042
     Dates: start: 20200804

REACTIONS (3)
  - Device issue [Unknown]
  - No adverse event [Unknown]
  - Device defective [Unknown]
